FAERS Safety Report 16784101 (Version 1)
Quarter: 2019Q3

REPORT INFORMATION
  Report Type: Spontaneous
  Country: CA (occurrence: CA)
  Receive Date: 20190909
  Receipt Date: 20190909
  Transmission Date: 20191005
  Serious: Yes (Other)
  Sender: FDA-Public Use
  Company Number: CA-CELLTRION INC.-2017CA003807

PATIENT

DRUGS (55)
  1. INFLECTRA [Suspect]
     Active Substance: INFLIXIMAB-DYYB
     Indication: PSORIATIC ARTHROPATHY
     Dosage: 446 MG, EACH 0, 2, 6 WEEKS, THEN EVERY 4 WEEKS
     Route: 042
     Dates: start: 20161221
  2. INFLECTRA [Suspect]
     Active Substance: INFLIXIMAB-DYYB
     Dosage: 6 MG/KG (500 MG), EVERY 4 WEEKS
     Route: 042
     Dates: start: 20180118
  3. INFLECTRA [Suspect]
     Active Substance: INFLIXIMAB-DYYB
     Dosage: 639.8 MG (7 MG/KG), (EVERY 4 WEEKS)
     Route: 042
     Dates: start: 20190110
  4. INFLECTRA [Suspect]
     Active Substance: INFLIXIMAB-DYYB
     Dosage: 639.8 MG (7.15 MG/KG), EVERY 4 WEEKS
     Route: 042
     Dates: start: 20190226
  5. ACETAMINOPHEN. [Concomitant]
     Active Substance: ACETAMINOPHEN
     Dosage: 1 G, UNK
     Route: 048
     Dates: start: 20190528
  6. BLEXTEN [Concomitant]
     Active Substance: BILASTINE
     Dosage: 20 MG, UNK
     Route: 048
     Dates: start: 20190827, end: 20190827
  7. INFLECTRA [Suspect]
     Active Substance: INFLIXIMAB-DYYB
     Dosage: 5 MG/KG, EVERY 4 WEEKS
     Route: 042
     Dates: start: 20161222, end: 20171123
  8. INFLECTRA [Suspect]
     Active Substance: INFLIXIMAB-DYYB
     Dosage: 6 MG/KG, EVERY 4 WEEKS
     Route: 042
     Dates: start: 20180607
  9. INFLECTRA [Suspect]
     Active Substance: INFLIXIMAB-DYYB
     Dosage: 639.8 MG (7 MG/KG), EVERY 4 WEEKS
     Route: 042
     Dates: start: 20180827
  10. INFLECTRA [Suspect]
     Active Substance: INFLIXIMAB-DYYB
     Dosage: 639.8 MG/KG, EVERY 4 WEEKS
     Route: 042
     Dates: start: 20190528
  11. ACETAMINOPHEN. [Concomitant]
     Active Substance: ACETAMINOPHEN
     Dosage: 1 G, UNK
     Route: 048
     Dates: start: 20181115
  12. CETIRIZINE [Concomitant]
     Active Substance: CETIRIZINE HYDROCHLORIDE
     Dosage: 20 MG, UNK
     Route: 048
     Dates: start: 20180827
  13. HYDROCORTISONE. [Concomitant]
     Active Substance: HYDROCORTISONE
     Indication: PREMEDICATION
     Dosage: 100 MG, UNK
     Route: 042
     Dates: start: 20180705
  14. HYDROCORTISONE. [Concomitant]
     Active Substance: HYDROCORTISONE
     Dosage: 100 MG, UNK
     Route: 042
     Dates: start: 20180827
  15. HYDROCORTISONE. [Concomitant]
     Active Substance: HYDROCORTISONE
     Dosage: 100 MG, UNK
     Route: 042
     Dates: start: 20181213
  16. HYDROCORTISONE. [Concomitant]
     Active Substance: HYDROCORTISONE
     Dosage: 100 MG, UNK
     Route: 042
     Dates: start: 20190425
  17. INFLECTRA [Suspect]
     Active Substance: INFLIXIMAB-DYYB
     Dosage: 6 MG/KG (554 MG INSTEAD OF 510 MG), EVERY 4 WEEKS
     Route: 042
     Dates: start: 20180215
  18. INFLECTRA [Suspect]
     Active Substance: INFLIXIMAB-DYYB
     Dosage: 639.8 MG (7 MG/KG), EVERY 4 WEEKS
     Route: 042
     Dates: start: 20181115
  19. INFLECTRA [Suspect]
     Active Substance: INFLIXIMAB-DYYB
     Dosage: 639.8 MG (7 MG/KG), EVERY 4 WEEKS
     Route: 042
     Dates: start: 20181213
  20. INFLECTRA [Suspect]
     Active Substance: INFLIXIMAB-DYYB
     Dosage: 940 MG, EVERY 4 WEEKS
     Route: 042
     Dates: start: 20190827
  21. TYLENOL [Concomitant]
     Active Substance: ACETAMINOPHEN
     Dosage: 1 G, UNK
     Route: 048
     Dates: start: 20190110
  22. BLEXTEN [Concomitant]
     Active Substance: BILASTINE
     Indication: PREMEDICATION
     Dosage: 20 MG, UNK
     Route: 048
     Dates: start: 20190528
  23. INFLECTRA [Suspect]
     Active Substance: INFLIXIMAB-DYYB
     Dosage: 6 MG/KG (522 MG), EVERY 4 WEEKS
     Route: 042
     Dates: start: 20171220, end: 20180705
  24. INFLECTRA [Suspect]
     Active Substance: INFLIXIMAB-DYYB
     Dosage: 6 MG/KG, EVERY 4 WEEKS
     Route: 042
     Dates: start: 20180705
  25. INFLECTRA [Suspect]
     Active Substance: INFLIXIMAB-DYYB
     Dosage: 639.8 MG (7 MG/KG). (EVERY 4 WEEKS)
     Route: 042
     Dates: start: 20190110
  26. INFLECTRA [Suspect]
     Active Substance: INFLIXIMAB-DYYB
     Dosage: 639.8 MG/KG, EVERY 4 WEEKS
     Route: 042
     Dates: start: 20190425
  27. ACETAMINOPHEN. [Concomitant]
     Active Substance: ACETAMINOPHEN
     Dosage: 1 G, UNK
     Route: 048
     Dates: start: 20180920
  28. ACETAMINOPHEN. [Concomitant]
     Active Substance: ACETAMINOPHEN
     Dosage: 1 G, UNK
     Route: 048
     Dates: start: 20181213
  29. HYDROCORTISONE. [Concomitant]
     Active Substance: HYDROCORTISONE
     Dosage: 100 MG, UNK
     Route: 042
     Dates: start: 20190827, end: 20190827
  30. INFLECTRA [Suspect]
     Active Substance: INFLIXIMAB-DYYB
     Dosage: 639.8 MG (7 MG/KG) , EVERY 4 WEEKS
     Route: 042
     Dates: start: 20180731, end: 20190528
  31. INFLECTRA [Suspect]
     Active Substance: INFLIXIMAB-DYYB
     Dosage: 639.8 MG (7.15 MG/KG), EVERY 4 WEEKS
     Route: 042
     Dates: start: 20190131
  32. ACETAMINOPHEN. [Concomitant]
     Active Substance: ACETAMINOPHEN
     Dosage: 1 G, UNK
     Route: 048
     Dates: start: 20190131
  33. CETIRIZINE [Concomitant]
     Active Substance: CETIRIZINE HYDROCHLORIDE
     Dosage: 20 MG, UNK
     Route: 048
     Dates: start: 20190131
  34. CETIRIZINE [Concomitant]
     Active Substance: CETIRIZINE HYDROCHLORIDE
     Dosage: 20 MG, UNK
     Route: 048
     Dates: start: 20190425
  35. HYDROCORTISONE. [Concomitant]
     Active Substance: HYDROCORTISONE
     Dosage: 100 MG, UNK
     Route: 042
     Dates: start: 20190131
  36. HYDROCORTISONE. [Concomitant]
     Active Substance: HYDROCORTISONE
     Dosage: 100 MG, UNK
     Route: 042
     Dates: start: 20190528
  37. INFLECTRA [Suspect]
     Active Substance: INFLIXIMAB-DYYB
     Dosage: 639.8 MG (7 MG/KG), EVERY 4 WEEKS
     Route: 042
     Dates: start: 20180827
  38. INFLECTRA [Suspect]
     Active Substance: INFLIXIMAB-DYYB
     Dosage: 639.8 MG (7 MG/KG), EVERY 4 WEEKS
     Route: 042
     Dates: start: 20180920
  39. ACETAMINOPHEN. [Concomitant]
     Active Substance: ACETAMINOPHEN
     Dosage: 1 G, UNK
     Route: 048
     Dates: start: 20180827
  40. ACETAMINOPHEN. [Concomitant]
     Active Substance: ACETAMINOPHEN
     Dosage: 1 G, UNK
     Route: 048
     Dates: start: 20190827, end: 20190827
  41. CETIRIZINE [Concomitant]
     Active Substance: CETIRIZINE HYDROCHLORIDE
     Indication: PREMEDICATION
     Dosage: 20 MG, UNK
     Route: 048
     Dates: start: 20180705
  42. CETIRIZINE [Concomitant]
     Active Substance: CETIRIZINE HYDROCHLORIDE
     Dosage: 20 MG, UNK
     Route: 048
     Dates: start: 20180920
  43. CETIRIZINE [Concomitant]
     Active Substance: CETIRIZINE HYDROCHLORIDE
     Dosage: 20 MG, UNK
     Route: 048
     Dates: start: 20181115
  44. REACTINE [CETIRIZINE HYDROCHLORIDE] [Concomitant]
     Active Substance: CETIRIZINE HYDROCHLORIDE
     Dosage: 20 MG, UNK
     Route: 048
     Dates: start: 20190110
  45. INFLECTRA [Suspect]
     Active Substance: INFLIXIMAB-DYYB
     Dosage: 640 MG, EVERY 6 WEEKS
     Route: 042
     Dates: start: 20190325
  46. INFLECTRA [Suspect]
     Active Substance: INFLIXIMAB-DYYB
     Dosage: 639.8 MG/KG, EVERY 4 WEEKS
     Route: 042
     Dates: start: 20190702
  47. INFLECTRA [Suspect]
     Active Substance: INFLIXIMAB-DYYB
     Dosage: 940 MG, EVERY 4 WEEKS
     Route: 042
     Dates: start: 20190730
  48. ACETAMINOPHEN. [Concomitant]
     Active Substance: ACETAMINOPHEN
     Indication: PREMEDICATION
     Dosage: 1 G, UNK
     Route: 048
     Dates: start: 20180705
  49. HYDROCORTISONE. [Concomitant]
     Active Substance: HYDROCORTISONE
     Dosage: 100 MG, UNK
     Route: 042
     Dates: start: 20180920
  50. HYDROCORTISONE. [Concomitant]
     Active Substance: HYDROCORTISONE
     Dosage: 100 MG, UNK
     Route: 042
     Dates: start: 20181115
  51. INFLECTRA [Suspect]
     Active Substance: INFLIXIMAB-DYYB
     Dosage: 639.8 MG (7 MG/KG), (EVERY 4 WEEKS)
     Route: 042
     Dates: start: 20181018
  52. INFLECTRA [Suspect]
     Active Substance: INFLIXIMAB-DYYB
     Dosage: 639.8 MG/KG, EVERY 4 WEEKS
     Route: 042
     Dates: start: 20190702
  53. ACETAMINOPHEN. [Concomitant]
     Active Substance: ACETAMINOPHEN
     Dosage: 1 G, UNK
     Route: 048
     Dates: start: 20190425
  54. CETIRIZINE [Concomitant]
     Active Substance: CETIRIZINE HYDROCHLORIDE
     Dosage: 20 MG, UNK
     Route: 048
     Dates: start: 20181213
  55. SOLU-CORTEF [Concomitant]
     Active Substance: HYDROCORTISONE SODIUM SUCCINATE
     Dosage: 100 MG, UNK
     Route: 042
     Dates: start: 20190110

REACTIONS (16)
  - Productive cough [Recovering/Resolving]
  - Pallor [Unknown]
  - Off label use [Unknown]
  - Rash erythematous [Unknown]
  - Diarrhoea [Recovering/Resolving]
  - Heart rate irregular [Unknown]
  - Oropharyngeal pain [Recovering/Resolving]
  - Sputum discoloured [Recovering/Resolving]
  - Fatigue [Recovering/Resolving]
  - Blood pressure fluctuation [Not Recovered/Not Resolved]
  - Blister [Recovered/Resolved]
  - Condition aggravated [Not Recovered/Not Resolved]
  - Peripheral coldness [Unknown]
  - Pain in extremity [Unknown]
  - Weight fluctuation [Not Recovered/Not Resolved]
  - Product use issue [Unknown]

NARRATIVE: CASE EVENT DATE: 20170301
